FAERS Safety Report 24963158 (Version 1)
Quarter: 2025Q1

REPORT INFORMATION
  Report Type: Report from Study
  Country: CA (occurrence: CA)
  Receive Date: 20250213
  Receipt Date: 20250213
  Transmission Date: 20250408
  Serious: Yes (Death, Other)
  Sender: CSL BEHRING
  Company Number: CA-BEH-2025195245

PATIENT
  Age: 79 Year
  Sex: Male
  Weight: 88.889 kg

DRUGS (4)
  1. HIZENTRA [Suspect]
     Active Substance: HUMAN IMMUNOGLOBULIN G
     Indication: Secondary immunodeficiency
     Dosage: (PRODUCT STRENGTH REPORTED AS 6G), QW
     Route: 065
     Dates: start: 20170630
  2. ELIQUIS [Concomitant]
     Active Substance: APIXABAN
  3. CALCIUM [Concomitant]
     Active Substance: CALCIUM
  4. LASIX [Concomitant]
     Active Substance: FUROSEMIDE

REACTIONS (1)
  - Death [Fatal]

NARRATIVE: CASE EVENT DATE: 20240611
